FAERS Safety Report 8319686-4 (Version None)
Quarter: 2012Q1

REPORT INFORMATION
  Report Type: 
  Country: None (occurrence: None)
  Receive Date: 20120315
  Receipt Date: 20110211
  Transmission Date: 20120608
  Serious: No
  Sender: FDA-Public Use
  Company Number: PHHY2011US06565

PATIENT
  Age: 59 Year
  Sex: Male

DRUGS (4)
  1. HYDROCODONE BITARTRATE [Concomitant]
  2. GABAPENTIN [Concomitant]
  3. GILENYA [Suspect]
     Indication: RELAPSING-REMITTING MULTIPLE SCLEROSIS
     Dosage: 0.5 MG, QD, ORAL
     Route: 048
     Dates: start: 20110105, end: 20110125
  4. VIAGRA [Concomitant]

REACTIONS (1)
  - ARTHRALGIA [None]
